FAERS Safety Report 13548815 (Version 1)
Quarter: 2017Q2

REPORT INFORMATION
  Report Type: Spontaneous
  Country: US (occurrence: US)
  Receive Date: 20170516
  Receipt Date: 20170516
  Transmission Date: 20170830
  Serious: No
  Sender: FDA-Public Use
  Company Number: US-BION-005833

PATIENT
  Age: 65 Year
  Sex: Female

DRUGS (2)
  1. MOTRIN IB [Concomitant]
     Active Substance: IBUPROFEN
     Indication: ARTHRALGIA
     Dosage: STRENGTH: 800 MG?1 CAPLETS (HARD PILLS) AS NEEDED
  2. MOTRIN IB [Suspect]
     Active Substance: IBUPROFEN
     Indication: ARTHRALGIA
     Dosage: 1-2 LIQUID GELS AS DIRECTED
     Route: 048

REACTIONS (1)
  - Drug ineffective [Not Recovered/Not Resolved]
